FAERS Safety Report 7489416-7 (Version None)
Quarter: 2011Q2

REPORT INFORMATION
  Report Type: 
  Country: None (occurrence: None)
  Receive Date: 20110518
  Receipt Date: 20110511
  Transmission Date: 20111010
  Serious: Yes (Life-Threatening, Hospitalization, Other)
  Sender: FDA-Public Use
  Company Number: JP-MERCK-1104USA02123

PATIENT
  Age: 79 Year
  Sex: Female
  Weight: 35 kg

DRUGS (5)
  1. PEPCID RPD [Suspect]
     Indication: PEMPHIGOID
     Route: 048
     Dates: start: 20110225, end: 20110329
  2. SULFAMETHOXAZOLE [Suspect]
     Indication: PEMPHIGOID
     Route: 048
     Dates: start: 20110225, end: 20110405
  3. NIACINAMIDE [Concomitant]
     Route: 048
     Dates: start: 20110222, end: 20110405
  4. MINOCYCLINE HCL [Suspect]
     Indication: PEMPHIGOID
     Route: 048
     Dates: start: 20110222, end: 20110329
  5. PREDNISOLONE [Concomitant]
     Route: 065
     Dates: start: 20110219

REACTIONS (4)
  - ASTHENIA [None]
  - PANCYTOPENIA [None]
  - DISSEMINATED INTRAVASCULAR COAGULATION [None]
  - BLOOD CREATINE PHOSPHOKINASE INCREASED [None]
